FAERS Safety Report 7486729-X (Version None)
Quarter: 2011Q2

REPORT INFORMATION
  Report Type: 
  Country: None (occurrence: None)
  Receive Date: 20110517
  Receipt Date: 20110509
  Transmission Date: 20111010
  Serious: Yes (Hospitalization)
  Sender: FDA-Public Use
  Company Number: US-TEVA-280750USA

PATIENT
  Sex: Male

DRUGS (4)
  1. OSTEO BI-FLEX [Concomitant]
     Dosage: TWO
  2. DIOVAN HCT [Concomitant]
     Dosage: ONE, 320-25MG
  3. FISH OIL [Concomitant]
     Dosage: 1000 MG IN AM
  4. METFORMIN HYDROCHLORIDE [Suspect]

REACTIONS (6)
  - FATIGUE [None]
  - DRUG INEFFECTIVE [None]
  - PYREXIA [None]
  - HEADACHE [None]
  - TREMOR [None]
  - BLOOD PRESSURE DECREASED [None]
